FAERS Safety Report 13384759 (Version 3)
Quarter: 2017Q2

REPORT INFORMATION
  Report Type: Spontaneous
  Country: US (occurrence: US)
  Receive Date: 20170329
  Receipt Date: 20170616
  Transmission Date: 20170830
  Serious: Yes (Hospitalization, Other)
  Sender: FDA-Public Use
  Company Number: US-PFIZER INC-2017128530

PATIENT
  Age: 17 Year
  Sex: Male
  Weight: 78 kg

DRUGS (8)
  1. GENOTROPIN [Suspect]
     Active Substance: SOMATROPIN
     Indication: DWARFISM
     Dosage: 3.8 MG, DAILY
     Route: 058
     Dates: start: 20140816
  2. ABILIFY [Concomitant]
     Active Substance: ARIPIPRAZOLE
     Indication: BIPOLAR DISORDER
     Dosage: UNK
  3. GENOTROPIN [Suspect]
     Active Substance: SOMATROPIN
     Indication: GROWTH HORMONE DEFICIENCY
     Dosage: 4.0 MG, DAILY (6X/WEEK)
     Route: 058
     Dates: start: 20140913
  4. GENOTROPIN [Suspect]
     Active Substance: SOMATROPIN
     Dosage: UNK, (4 6 X WEEK)
     Route: 058
     Dates: start: 201410
  5. PAXIL [Concomitant]
     Active Substance: PAROXETINE HYDROCHLORIDE
     Dosage: UNK
     Dates: end: 201704
  6. BUSPAR [Concomitant]
     Active Substance: BUSPIRONE HYDROCHLORIDE
     Dosage: UNK
     Dates: end: 201704
  7. LITHIUM. [Concomitant]
     Active Substance: LITHIUM
     Indication: BIPOLAR DISORDER
     Dosage: UNK
     Dates: start: 2009
  8. ZOLOFT [Concomitant]
     Active Substance: SERTRALINE HYDROCHLORIDE
     Indication: BIPOLAR DISORDER
     Dosage: UNK
     Dates: end: 201704

REACTIONS (4)
  - Anger [Recovering/Resolving]
  - Suicidal ideation [Unknown]
  - Depression [Unknown]
  - Condition aggravated [Recovering/Resolving]
